FAERS Safety Report 13209002 (Version 1)
Quarter: 2017Q1

REPORT INFORMATION
  Report Type: Spontaneous
  Country: US (occurrence: US)
  Receive Date: 20170209
  Receipt Date: 20170209
  Transmission Date: 20170428
  Serious: No
  Sender: FDA-Public Use
  Company Number: US-PERRIGO-16US022936

PATIENT
  Age: 76 Year
  Sex: Male
  Weight: 126.98 kg

DRUGS (2)
  1. PERMETHRIN. [Suspect]
     Active Substance: PERMETHRIN
     Dosage: 20 ML, 1 TO 2 TIMES DAILY
     Route: 061
     Dates: start: 201611
  2. PERMETHRIN. [Suspect]
     Active Substance: PERMETHRIN
     Indication: MITE ALLERGY
     Dosage: 20 ML, EVERY 7 TO 10 DAYS
     Route: 061
     Dates: start: 201610, end: 201611

REACTIONS (2)
  - Overdose [Unknown]
  - Off label use [Unknown]

NARRATIVE: CASE EVENT DATE: 201610
